FAERS Safety Report 8594106-3 (Version None)
Quarter: 2012Q3

REPORT INFORMATION
  Report Type: 
  Country: None (occurrence: None)
  Receive Date: 20120814
  Receipt Date: 20120806
  Transmission Date: 20120928
  Serious: Yes (Hospitalization)
  Sender: FDA-Public Use
  Company Number: GB-BAXTER-2012BAX013858

PATIENT
  Sex: Male
  Weight: 22.9 kg

DRUGS (16)
  1. IFEX [Suspect]
     Route: 042
     Dates: start: 20120704, end: 20120704
  2. IFEX [Suspect]
     Route: 042
     Dates: start: 20120705, end: 20120705
  3. DACTINOMYCIN [Suspect]
     Route: 042
     Dates: start: 20120704, end: 20120704
  4. MESNEX [Suspect]
     Route: 042
     Dates: start: 20120704, end: 20120704
  5. DOXORUBICIN HYDROCHLORIDE [Suspect]
     Route: 042
     Dates: start: 20120704, end: 20120704
  6. DEXAMETHASONE [Concomitant]
     Route: 065
     Dates: start: 20120708, end: 20120708
  7. DEXAMETHASONE [Concomitant]
     Route: 065
     Dates: start: 20120707, end: 20120707
  8. MESNEX [Suspect]
     Route: 042
     Dates: start: 20120706, end: 20120706
  9. MOVIPREP [Concomitant]
     Dosage: 2 SACHETS
     Route: 065
     Dates: start: 20120701, end: 20120709
  10. ONDANSETRON [Concomitant]
     Dates: start: 20120714, end: 20120720
  11. MESNEX [Suspect]
     Route: 042
     Dates: start: 20120705, end: 20120705
  12. DOXORUBICIN HYDROCHLORIDE [Suspect]
     Route: 042
     Dates: start: 20120705, end: 20120705
  13. COTRIM [Concomitant]
     Route: 065
     Dates: start: 20120707
  14. DOCUSATE SODIUM [Concomitant]
     Route: 065
     Dates: start: 20120703
  15. VINCRISTINE [Suspect]
     Route: 042
     Dates: start: 20120704, end: 20120704
  16. VINCRISTINE [Suspect]
     Route: 042
     Dates: start: 20120711, end: 20120711

REACTIONS (2)
  - VOMITING [None]
  - FEBRILE NEUTROPENIA [None]
